FAERS Safety Report 12685175 (Version 2)
Quarter: 2016Q3

REPORT INFORMATION
  Report Type: Spontaneous
  Country: GB (occurrence: GB)
  Receive Date: 20160825
  Receipt Date: 20160902
  Transmission Date: 20161109
  Serious: No
  Sender: FDA-Public Use
  Company Number: GB-009507513-1608GBR009169

PATIENT
  Sex: Female

DRUGS (1)
  1. NEXPLANON [Suspect]
     Active Substance: ETONOGESTREL
     Indication: PRODUCT USED FOR UNKNOWN INDICATION
     Dosage: 1 DF/ 4 YEARS (RATHER THAN 3 YEARS)
     Route: 059
     Dates: start: 201304

REACTIONS (4)
  - Incorrect drug administration duration [Unknown]
  - Amenorrhoea [Recovered/Resolved]
  - Drug prescribing error [Unknown]
  - Vaginal haemorrhage [Unknown]

NARRATIVE: CASE EVENT DATE: 201304
